FAERS Safety Report 9180814 (Version 3)
Quarter: 2013Q3

REPORT INFORMATION
  Report Type: Spontaneous
  Country: US (occurrence: None)
  Receive Date: 20130320
  Receipt Date: 20130702
  Transmission Date: 20140515
  Serious: Yes (Other)
  Sender: FDA-Public Use
  Company Number: AUR-APL-2013-02326

PATIENT
  Age: 72 Year
  Sex: Male

DRUGS (1)
  1. ZOLPIDEM [Suspect]
     Indication: SLEEP DISORDER
     Dates: start: 20111218

REACTIONS (5)
  - Drug effect decreased [None]
  - Insomnia [None]
  - Somnolence [None]
  - Loss of consciousness [None]
  - Road traffic accident [None]
